FAERS Safety Report 12750604 (Version 1)
Quarter: 2016Q3

REPORT INFORMATION
  Report Type: Spontaneous
  Country: US (occurrence: US)
  Receive Date: 20160915
  Receipt Date: 20160915
  Transmission Date: 20161109
  Serious: Yes (Death, Other)
  Sender: FDA-Public Use
  Company Number: US-ASTELLAS-2016US000575

PATIENT
  Sex: Male

DRUGS (1)
  1. XTANDI [Suspect]
     Active Substance: ENZALUTAMIDE
     Indication: PROSTATE CANCER METASTATIC
     Dosage: 4 CAPSULES OR LESS THAN 4 CAPSULES ONCE DAILY
     Route: 065
     Dates: start: 201401

REACTIONS (4)
  - Underdose [Unknown]
  - Malignant neoplasm progression [Fatal]
  - Wrong technique in product usage process [Unknown]
  - Drug dose omission [Unknown]
